FAERS Safety Report 6987018-X (Version None)
Quarter: 2010Q3

REPORT INFORMATION
  Report Type: 
  Country: None (occurrence: None)
  Receive Date: 20100916
  Receipt Date: 20100909
  Transmission Date: 20110219
  Serious: No
  Sender: FDA-Public Use
  Company Number: US-BIOGENIDEC-2010BI031630

PATIENT
  Age: 49 Year
  Sex: Female

DRUGS (1)
  1. TYSABRI [Suspect]
     Indication: MULTIPLE SCLEROSIS
     Route: 042
     Dates: start: 20100811

REACTIONS (6)
  - DIZZINESS [None]
  - FATIGUE [None]
  - HYPOAESTHESIA FACIAL [None]
  - MULTIPLE ALLERGIES [None]
  - NAUSEA [None]
  - TREMOR [None]
